FAERS Safety Report 14082025 (Version 2)
Quarter: 2018Q1

REPORT INFORMATION
  Report Type: Spontaneous
  Country: US (occurrence: US)
  Receive Date: 20171012
  Receipt Date: 20180109
  Transmission Date: 20180508
  Serious: No
  Sender: FDA-Public Use
  Company Number: US-MYLANLABS-2017M1046691

PATIENT
  Age: 61 Year
  Sex: Male

DRUGS (2)
  1. DOXEPIN HYDROCHLORIDE CAPSULES, USP [Suspect]
     Active Substance: DOXEPIN HYDROCHLORIDE
     Indication: DEPRESSION
  2. DOXEPIN HYDROCHLORIDE CAPSULES, USP [Suspect]
     Active Substance: DOXEPIN HYDROCHLORIDE
     Indication: INSOMNIA
     Dosage: 2 DF, PM

REACTIONS (1)
  - Drug ineffective [Unknown]

NARRATIVE: CASE EVENT DATE: 201707
